FAERS Safety Report 14308849 (Version 1)
Quarter: 2017Q4

REPORT INFORMATION
  Report Type: Spontaneous
  Country: US (occurrence: US)
  Receive Date: 20171219
  Receipt Date: 20171219
  Transmission Date: 20180321
  Serious: Yes (Life-Threatening, Hospitalization)
  Sender: FDA-Public Use
  Company Number: None

PATIENT
  Age: 74 Year
  Sex: Male

DRUGS (1)
  1. SULFAMETHOXAZOLE/TRIMETHOPRIM [Suspect]
     Active Substance: SULFAMETHOXAZOLE\TRIMETHOPRIM
     Indication: CELLULITIS
     Route: 048
     Dates: start: 20171117, end: 20171121

REACTIONS (6)
  - Hypersensitivity [None]
  - Stevens-Johnson syndrome [None]
  - Inflammation [None]
  - Toxic epidermal necrolysis [None]
  - Erythema multiforme [None]
  - Epidermal necrosis [None]

NARRATIVE: CASE EVENT DATE: 20171121
